FAERS Safety Report 5129528-6 (Version None)
Quarter: 2006Q4

REPORT INFORMATION
  Report Type: 
  Country: None (occurrence: None)
  Receive Date: 20061012
  Receipt Date: 20061002
  Transmission Date: 20070319
  Serious: Yes (Other)
  Sender: FDA-Public Use
  Company Number: 2006-05237

PATIENT
  Age: 57 Year
  Sex: Male

DRUGS (2)
  1. ANDRODERM [Suspect]
     Indication: BLOOD TESTOSTERONE DECREASED
     Dosage: 1 PATCH, DAILY, TRANSDERMAL
     Route: 062
     Dates: start: 20060601
  2. ANDRODERM [Suspect]
     Indication: BLOOD TESTOSTERONE DECREASED
     Dosage: 1 PATCH, DAILY, TRANSDERMAL
     Route: 062
     Dates: start: 20060301, end: 20060601

REACTIONS (1)
  - MALIGNANT MELANOMA [None]
